FAERS Safety Report 13610301 (Version 1)
Quarter: 2017Q2

REPORT INFORMATION
  Report Type: Spontaneous
  Country: US (occurrence: US)
  Receive Date: 20170602
  Receipt Date: 20170602
  Transmission Date: 20170830
  Serious: Yes (Other)
  Sender: FDA-Public Use
  Company Number: None

PATIENT
  Sex: Female

DRUGS (10)
  1. AFINITOR [Suspect]
     Active Substance: EVEROLIMUS
     Indication: BREAST CANCER
     Route: 048
     Dates: start: 20170420, end: 20170601
  2. ACYCLOVIR. [Concomitant]
     Active Substance: ACYCLOVIR
  3. VITAMIN D [Concomitant]
     Active Substance: CHOLECALCIFEROL
  4. EXEMESTANE 25MG [Suspect]
     Active Substance: EXEMESTANE
     Indication: BREAST CANCER
  5. ZINC. [Concomitant]
     Active Substance: ZINC
  6. LEXAPRO [Concomitant]
     Active Substance: ESCITALOPRAM OXALATE
  7. OXYCODONE [Concomitant]
     Active Substance: OXYCODONE
  8. FENTANYL. [Concomitant]
     Active Substance: FENTANYL
  9. VITAMIN B [Concomitant]
     Active Substance: VITAMIN B
  10. MAGNESIUM [Concomitant]
     Active Substance: MAGNESIUM

REACTIONS (1)
  - Chills [None]
